FAERS Safety Report 7281558-4 (Version None)
Quarter: 2011Q1

REPORT INFORMATION
  Report Type: 
  Country: None (occurrence: None)
  Receive Date: 20110208
  Receipt Date: 20110126
  Transmission Date: 20110831
  Serious: Yes (Hospitalization, Other)
  Sender: FDA-Public Use
  Company Number: PHHY2009CA48783

PATIENT
  Sex: Male

DRUGS (3)
  1. SANDOSTATIN LAR [Suspect]
     Dosage: 40 MG, QMO
     Route: 030
     Dates: end: 20070620
  2. PEGVISOMANT [Concomitant]
     Dosage: DAILY
  3. SANDOSTATIN LAR [Suspect]
     Indication: ACROMEGALY
     Dosage: 40 MG, EVERY FOUR WEEKS
     Route: 030
     Dates: start: 19970301

REACTIONS (9)
  - HYPOAESTHESIA [None]
  - PARAESTHESIA [None]
  - INJECTION SITE HAEMORRHAGE [None]
  - ARTHRALGIA [None]
  - ERYTHEMA [None]
  - PNEUMONIA ASPIRATION [None]
  - INTERNATIONAL NORMALISED RATIO INCREASED [None]
  - DIABETES MELLITUS [None]
  - RASH [None]
